FAERS Safety Report 6278086-1 (Version None)
Quarter: 2009Q3

REPORT INFORMATION
  Report Type: 
  Country: None (occurrence: None)
  Receive Date: 20090722
  Receipt Date: 20090716
  Transmission Date: 20100115
  Serious: Yes (Other)
  Sender: FDA-Public Use
  Company Number: US-JNJFOC-20060906246

PATIENT
  Sex: Female
  Weight: 72.44 kg

DRUGS (1)
  1. RISPERDAL [Suspect]
     Indication: DEPRESSION

REACTIONS (2)
  - PALPITATIONS [None]
  - TYPE 2 DIABETES MELLITUS [None]
